FAERS Safety Report 6358879-2 (Version None)
Quarter: 2009Q3

REPORT INFORMATION
  Report Type: 
  Country: None (occurrence: None)
  Receive Date: 20090916
  Receipt Date: 20090902
  Transmission Date: 20100115
  Serious: No
  Sender: FDA-Public Use
  Company Number: US-ABBOTT-09P-163-0594811-00

PATIENT
  Sex: Female
  Weight: 68.1 kg

DRUGS (8)
  1. TRILIPIX [Suspect]
     Indication: BLOOD TRIGLYCERIDES INCREASED
     Dates: start: 20090701, end: 20090801
  2. TRILIPIX [Suspect]
     Dates: start: 20090831
  3. ALLOPURINOL [Concomitant]
     Indication: NEPHROLITHIASIS
     Route: 048
  4. SIMVASTATIN [Concomitant]
     Indication: BLOOD CHOLESTEROL INCREASED
     Route: 048
  5. TOPROL-XL [Concomitant]
     Indication: HYPERTENSION
     Route: 048
  6. MAVIK [Concomitant]
     Indication: HYPERTENSION
     Route: 048
  7. FOSAMAX [Concomitant]
     Indication: OSTEOPOROSIS
     Route: 048
  8. FOSAMAX [Concomitant]
     Indication: OSTEOPENIA

REACTIONS (2)
  - INCORRECT DRUG ADMINISTRATION DURATION [None]
  - MIDDLE INSOMNIA [None]
